FAERS Safety Report 18567317 (Version 2)
Quarter: 2021Q1

REPORT INFORMATION
  Report Type: Spontaneous
  Country: JP (occurrence: JP)
  Receive Date: 20201201
  Receipt Date: 20210111
  Transmission Date: 20210419
  Serious: Yes (Other)
  Sender: FDA-Public Use
  Company Number: JP-SA-2020SA344657

PATIENT
  Age: 47 Year
  Sex: Male
  Weight: 81 kg

DRUGS (3)
  1. BILANOA [Concomitant]
     Active Substance: BILASTINE
     Indication: DERMATITIS ATOPIC
     Dosage: 200 MG, QD
     Route: 048
     Dates: start: 20181213
  2. DUPIXENT [Suspect]
     Active Substance: DUPILUMAB
     Dosage: 300 MG, QOW
     Route: 058
     Dates: start: 20190418
  3. DUPIXENT [Suspect]
     Active Substance: DUPILUMAB
     Indication: DERMATITIS ATOPIC
     Dosage: 300 MG, QOW
     Route: 058
     Dates: start: 20180614, end: 201902

REACTIONS (2)
  - Rectal cancer [Recovered/Resolved]
  - Gastrointestinal perforation [Recovered/Resolved]

NARRATIVE: CASE EVENT DATE: 201902
